FAERS Safety Report 4525918-0 (Version None)
Quarter: 2004Q4

REPORT INFORMATION
  Report Type: 
  Country: None (occurrence: None)
  Receive Date: 20041124
  Receipt Date: 20040430
  Transmission Date: 20050328
  Serious: Yes (Hospitalization, Other)
  Sender: FDA-Public Use
  Company Number: 2004015857

PATIENT
  Age: 38 Year
  Sex: Male
  Weight: 142.4295 kg

DRUGS (6)
  1. TIKOSYN [Suspect]
     Indication: ATRIAL FIBRILLATION
     Dosage: 1000 MCG BID, ORAL
     Route: 048
     Dates: start: 20040223, end: 20040312
  2. WARFARIN SODIUM [Concomitant]
  3. OMEPRAZOLE [Concomitant]
  4. DILTIAZEM HYDROCHLORIDE [Concomitant]
  5. DIGOXIN [Concomitant]
  6. VITAMINS (VITAMINS) [Concomitant]

REACTIONS (10)
  - ARTHRALGIA [None]
  - ATRIAL FIBRILLATION [None]
  - BLOOD POTASSIUM DECREASED [None]
  - BLOOD SODIUM DECREASED [None]
  - CONDITION AGGRAVATED [None]
  - EAR INFECTION [None]
  - EYE REDNESS [None]
  - HYPERSENSITIVITY [None]
  - RASH [None]
  - RHEUMATOID ARTHRITIS [None]
